FAERS Safety Report 16957670 (Version 1)
Quarter: 2019Q4

REPORT INFORMATION
  Report Type: Other
  Country: CA (occurrence: CA)
  Receive Date: 20191024
  Receipt Date: 20191024
  Transmission Date: 20200122
  Serious: Yes (Disabling)
  Sender: FDA-Public Use
  Company Number: CA-APOTEX-2019AP023774

PATIENT
  Age: 72 Year
  Sex: Male
  Weight: 73.47 kg

DRUGS (3)
  1. APO-MOMETASONE [Suspect]
     Active Substance: MOMETASONE FUROATE
     Indication: NASOPHARYNGITIS
     Dosage: 2 DF, BID
     Route: 045
  2. APO-MOMETASONE [Suspect]
     Active Substance: MOMETASONE FUROATE
     Indication: NASAL CONGESTION
  3. MOXIFLOXACIN. [Concomitant]
     Active Substance: MOXIFLOXACIN
     Indication: PRODUCT USED FOR UNKNOWN INDICATION
     Dosage: UNK
     Route: 065

REACTIONS (2)
  - Ageusia [Not Recovered/Not Resolved]
  - Anosmia [Not Recovered/Not Resolved]
